FAERS Safety Report 6029219-3 (Version None)
Quarter: 2009Q1

REPORT INFORMATION
  Report Type: 
  Country: None (occurrence: None)
  Receive Date: 20090106
  Receipt Date: 20090106
  Transmission Date: 20090719
  Serious: No
  Sender: FDA-Public Use
  Company Number: US-B.I. PHARMACEUTICALS,INC./RIDGEFIELD-2008-BP-17583BP

PATIENT
  Sex: Male

DRUGS (8)
  1. SPIRIVA [Suspect]
     Indication: CHRONIC OBSTRUCTIVE PULMONARY DISEASE
     Route: 055
     Dates: start: 20081001
  2. SPIRIVA [Suspect]
     Indication: EMPHYSEMA
  3. SPIRIVA [Suspect]
     Indication: DYSPNOEA
  4. ADVAIR DISKUS 100/50 [Concomitant]
     Indication: DYSPNOEA
  5. ALBUTEROL SULFATE [Concomitant]
     Indication: DYSPNOEA
  6. ATROVENT HFA [Concomitant]
     Indication: DYSPNOEA
  7. PREDNISONE [Concomitant]
     Indication: DYSPNOEA
  8. OXYGEN [Concomitant]
     Indication: DYSPNOEA

REACTIONS (1)
  - DRUG INEFFECTIVE [None]
